FAERS Safety Report 19280712 (Version 2)
Quarter: 2021Q2

REPORT INFORMATION
  Report Type: Spontaneous
  Country: ES (occurrence: ES)
  Receive Date: 20210520
  Receipt Date: 20210520
  Transmission Date: 20210717
  Serious: Yes (Life-Threatening)
  Sender: FDA-Public Use
  Company Number: ES-PFIZER INC-2021525014

PATIENT
  Age: 9 Year
  Sex: Male

DRUGS (7)
  1. MIDAZOLAM. [Concomitant]
     Active Substance: MIDAZOLAM
     Indication: SEDATION
     Dosage: UNK
  2. ADRENALINE (EPINEPHRINE) INJECTION BP 1:1000 [Concomitant]
     Indication: ASTHMA
     Dosage: UNK
     Route: 058
  3. VECURONIUM [Concomitant]
     Active Substance: VECURONIUM BROMIDE
     Indication: SEDATION
     Dosage: UNK
  4. MAGNESIUM SULFATE. [Suspect]
     Active Substance: MAGNESIUM SULFATE
     Indication: STATUS ASTHMATICUS
     Dosage: UNK
     Route: 040
  5. KETAMINE HCL [Suspect]
     Active Substance: KETAMINE HYDROCHLORIDE
     Indication: STATUS ASTHMATICUS
     Dosage: 2 MG/G (PER HR, PERFUSION)
     Route: 042
  6. AMINOPHYLLINE. [Suspect]
     Active Substance: AMINOPHYLLINE
     Indication: STATUS ASTHMATICUS
     Dosage: UNK (PERFUSIONS)
     Route: 042
  7. SALBUTAMOL [Concomitant]
     Active Substance: ALBUTEROL
     Indication: ASTHMA
     Dosage: UNK
     Route: 055

REACTIONS (2)
  - Off label use [Unknown]
  - Drug ineffective for unapproved indication [Recovering/Resolving]
